FAERS Safety Report 16459369 (Version 1)
Quarter: 2019Q2

REPORT INFORMATION
  Report Type: Spontaneous
  Country: IT (occurrence: IT)
  Receive Date: 20190620
  Receipt Date: 20190620
  Transmission Date: 20190711
  Serious: Yes (Other)
  Sender: FDA-Public Use
  Company Number: IT-ACCORD-133731

PATIENT
  Age: 52 Year
  Sex: Female
  Weight: 67 kg

DRUGS (7)
  1. PACLITAXEL ACCORD [Suspect]
     Active Substance: PACLITAXEL
     Indication: BREAST CANCER
     Dosage: STRENGTH: 6 MG / ML
     Route: 042
     Dates: start: 20190214, end: 20190313
  2. ONDANSETRON [Concomitant]
     Active Substance: ONDANSETRON
     Indication: PREMEDICATION
     Route: 042
     Dates: start: 20190214
  3. KANJINTI [Concomitant]
     Active Substance: TRASTUZUMAB-ANNS
     Indication: BREAST CANCER
     Route: 042
     Dates: start: 20190215
  4. RANITIDINE. [Concomitant]
     Active Substance: RANITIDINE
     Indication: PREMEDICATION
     Route: 042
     Dates: start: 20190214
  5. PERJETA [Concomitant]
     Active Substance: PERTUZUMAB
     Indication: BREAST CANCER
     Dosage: STRENGTH: 420 MG
     Route: 042
     Dates: start: 20190214
  6. CHLORPHENAMINE/CHLORPHENAMINE MALEATE/CHLORPHENAMINE RESINATE/CHLORPHENAMINE TANNATE [Concomitant]
     Indication: PREMEDICATION
     Route: 042
     Dates: start: 20190214
  7. DEXAMETHASONE. [Concomitant]
     Active Substance: DEXAMETHASONE
     Indication: PREMEDICATION
     Route: 042
     Dates: start: 20190214

REACTIONS (1)
  - Macular oedema [Recovering/Resolving]

NARRATIVE: CASE EVENT DATE: 20190319
